FAERS Safety Report 20232827 (Version 1)
Quarter: 2021Q4

REPORT INFORMATION
  Report Type: Spontaneous
  Country: CN (occurrence: CN)
  Receive Date: 20211227
  Receipt Date: 20211227
  Transmission Date: 20220303
  Serious: Yes (Other)
  Sender: FDA-Public Use
  Company Number: CN-PFIZER INC-202101806402

PATIENT
  Age: 5 Year
  Sex: Male
  Weight: 27 kg

DRUGS (2)
  1. DIFLUCAN [Suspect]
     Active Substance: FLUCONAZOLE
     Indication: Intracranial infection
     Dosage: 150 MG, 1X/DAY
     Route: 041
     Dates: start: 20210830, end: 20211010
  2. HYDROCORTISONE SODIUM SUCCINATE [Concomitant]
     Active Substance: HYDROCORTISONE SODIUM SUCCINATE
     Indication: Craniopharyngioma
     Dosage: 50 MG, 1X/DAY
     Route: 041
     Dates: start: 20210718, end: 20211215

REACTIONS (1)
  - Dyslipidaemia [Not Recovered/Not Resolved]

NARRATIVE: CASE EVENT DATE: 20210906
